FAERS Safety Report 18571353 (Version 1)
Quarter: 2020Q4

REPORT INFORMATION
  Report Type: Spontaneous
  Country: US (occurrence: US)
  Receive Date: 20201202
  Receipt Date: 20201202
  Transmission Date: 20210114
  Serious: Yes (Hospitalization, Other)
  Sender: FDA-Public Use
  Company Number: US-PURDUE-USA-2020-0179717

PATIENT
  Sex: Male

DRUGS (5)
  1. OXYCONTIN [Suspect]
     Active Substance: OXYCODONE HYDROCHLORIDE
     Indication: ROAD TRAFFIC ACCIDENT
     Dosage: 40 MG, UNK
     Route: 048
     Dates: start: 2003, end: 2019
  2. DILAUDID [Suspect]
     Active Substance: HYDROMORPHONE HYDROCHLORIDE
     Indication: SURGERY
  3. MS CONTIN [Suspect]
     Active Substance: MORPHINE SULFATE
     Indication: ROAD TRAFFIC ACCIDENT
     Dosage: UNK
     Route: 048
  4. DILAUDID [Suspect]
     Active Substance: HYDROMORPHONE HYDROCHLORIDE
     Indication: ROAD TRAFFIC ACCIDENT
     Dosage: UNK
     Route: 048
  5. HYDROMORPHONE TABLETS [Suspect]
     Active Substance: HYDROMORPHONE
     Indication: ROAD TRAFFIC ACCIDENT
     Dosage: UNK
     Route: 048

REACTIONS (12)
  - Drug dependence [Unknown]
  - Emotional distress [Unknown]
  - Amnesia [Unknown]
  - Blood testosterone decreased [Unknown]
  - Illness [Unknown]
  - Accidental overdose [Unknown]
  - Intentional overdose [Unknown]
  - Mental disorder [Unknown]
  - Hospitalisation [Unknown]
  - Suicidal ideation [Unknown]
  - Substance abuse [Unknown]
  - Drug withdrawal syndrome [Unknown]
